FAERS Safety Report 14666632 (Version 2)
Quarter: 2018Q2

REPORT INFORMATION
  Report Type: Report from Study
  Country: US (occurrence: US)
  Receive Date: 20180322
  Receipt Date: 20180504
  Transmission Date: 20180711
  Serious: No
  Sender: FDA-Public Use
  Company Number: US-AMGEN-USASL2018037805

PATIENT
  Sex: Female

DRUGS (2)
  1. ENBREL [Suspect]
     Active Substance: ETANERCEPT
     Indication: RHEUMATOID ARTHRITIS
     Dosage: 50 MG, QWK
     Route: 065
  2. ENBREL [Suspect]
     Active Substance: ETANERCEPT
     Dosage: 50 MG, Q2WK
     Route: 065

REACTIONS (9)
  - Nasal congestion [Unknown]
  - Pain in extremity [Recovering/Resolving]
  - Arthropathy [Unknown]
  - Joint stiffness [Unknown]
  - Foot deformity [Recovering/Resolving]
  - Finger deformity [Unknown]
  - Intentional product misuse [Unknown]
  - Drug dose omission [Unknown]
  - Bone disorder [Recovering/Resolving]

NARRATIVE: CASE EVENT DATE: 2017
